FAERS Safety Report 9784704 (Version 1)
Quarter: 2013Q4

REPORT INFORMATION
  Report Type: Report from Study
  Country: US (occurrence: US)
  Receive Date: 20131226
  Receipt Date: 20131226
  Transmission Date: 20140711
  Serious: Yes (Other)
  Sender: FDA-Public Use
  Company Number: US-ROCHE-1323336

PATIENT
  Sex: Female
  Weight: 32 kg

DRUGS (2)
  1. NUTROPIN AQ [Suspect]
     Indication: GROWTH HORMONE DEFICIENCY
     Dosage: 10 GM/2ML, 0.7 MG/DAYS
     Route: 058
  2. DEPAKOTE [Concomitant]
     Indication: EPILEPSY
     Route: 048

REACTIONS (4)
  - Convulsion [Unknown]
  - Vitamin D decreased [Unknown]
  - Developmental delay [Unknown]
  - Blood glucose decreased [Unknown]
